FAERS Safety Report 6911350-9 (Version None)
Quarter: 2010Q3

REPORT INFORMATION
  Report Type: 
  Country: None (occurrence: None)
  Receive Date: 20100806
  Receipt Date: 20100802
  Transmission Date: 20110219
  Serious: Yes (Other)
  Sender: FDA-Public Use
  Company Number: BR-BRISTOL-MYERS SQUIBB COMPANY-15212574

PATIENT
  Sex: Male
  Weight: 3 kg

DRUGS (4)
  1. VIDEX [Suspect]
     Route: 064
     Dates: start: 20030605, end: 20030727
  2. VIRACEPT [Suspect]
     Route: 064
     Dates: start: 20030611, end: 20030727
  3. VIRAMUNE [Suspect]
     Route: 064
     Dates: start: 20030611, end: 20030727
  4. CEFALEXIN [Suspect]
     Route: 064

REACTIONS (2)
  - MICROPHTHALMOS [None]
  - UMBILICAL HERNIA [None]
